FAERS Safety Report 9212353 (Version 2)
Quarter: 2013Q2

REPORT INFORMATION
  Report Type: Report from Study
  Country: BR (occurrence: BR)
  Receive Date: 20130404
  Receipt Date: 20130416
  Transmission Date: 20140414
  Serious: Yes (Death, Hospitalization, Other)
  Sender: FDA-Public Use
  Company Number: PHHY2012BR076160

PATIENT
  Age: 90 Year
  Sex: Male
  Weight: 72 kg

DRUGS (2)
  1. DIOVAN HCT [Suspect]
     Indication: HYPERTENSION
     Dosage: 160 MG VALS/25 MG HCT, QD
     Route: 048
  2. DIOVAN HCT [Suspect]
     Dosage: 1 DF, BID (160 MG VALS/25 MG HCT) (1 TABLET IN THE MORNING AND 1 TABLET AT NIGHT)
     Route: 048

REACTIONS (5)
  - Infarction [Fatal]
  - Pneumonia aspiration [Fatal]
  - Renal atrophy [Fatal]
  - Pneumonia [Recovered/Resolved]
  - Blood pressure increased [Recovering/Resolving]
